FAERS Safety Report 19156280 (Version 1)
Quarter: 2021Q2

REPORT INFORMATION
  Report Type: Report from Study
  Country: US (occurrence: US)
  Receive Date: 20210419
  Receipt Date: 20210419
  Transmission Date: 20210717
  Serious: Yes (Hospitalization)
  Sender: FDA-Public Use
  Company Number: US-EXELIXIS-CABO-20034395

PATIENT
  Sex: Male
  Weight: 84.99 kg

DRUGS (8)
  1. PANTOPRAZOLE SODIUM. [Concomitant]
     Active Substance: PANTOPRAZOLE SODIUM
  2. MODERNA COVID?19 VACCINE (EUA) [Concomitant]
  3. UDDERLY SMOOTH MOISTURIZING LOTION [Concomitant]
     Active Substance: COSMETICS
  4. MORPHINE [Concomitant]
     Active Substance: MORPHINE
     Dosage: 60 MG, QD
  5. TUMS [Concomitant]
     Active Substance: CALCIUM CARBONATE
  6. CABOMETYX [Suspect]
     Active Substance: CABOZANTINIB S-MALATE
     Dosage: 60 MG, QD
     Route: 048
     Dates: start: 202009
  7. VITAMIN D [Concomitant]
     Active Substance: VITAMIN D NOS
  8. CABOMETYX [Suspect]
     Active Substance: CABOZANTINIB S-MALATE
     Indication: RENAL CANCER METASTATIC
     Dosage: 60 MG, QD
     Route: 048
     Dates: start: 202008

REACTIONS (3)
  - Gallbladder disorder [Unknown]
  - Pain [Unknown]
  - Hyperkeratosis [Unknown]
